FAERS Safety Report 5924250-8 (Version None)
Quarter: 2008Q4

REPORT INFORMATION
  Report Type: 
  Country: None (occurrence: None)
  Receive Date: 20081020
  Receipt Date: 20081016
  Transmission Date: 20090506
  Serious: Yes (Life-Threatening)
  Sender: FDA-Public Use
  Company Number: FR-ASTRAZENECA-2008CG01515

PATIENT
  Age: 14341 Day
  Sex: Male

DRUGS (6)
  1. DIPRIVAN [Suspect]
     Indication: ANAESTHESIA
     Route: 042
     Dates: start: 20080212, end: 20080212
  2. XYLOCAINE [Suspect]
     Indication: ANAESTHESIA
     Route: 042
     Dates: start: 20080212, end: 20080212
  3. HYPNOVEL [Suspect]
     Indication: ANAESTHESIA
     Route: 042
     Dates: start: 20080212, end: 20080212
  4. TRACRIUM [Suspect]
     Indication: ANAESTHESIA
     Route: 042
     Dates: start: 20080212, end: 20080212
  5. SUFENTA PRESERVATIVE FREE [Concomitant]
     Indication: ANAESTHESIA
     Route: 042
     Dates: start: 20080212, end: 20080212
  6. SUFENTA PRESERVATIVE FREE [Concomitant]
     Route: 042
     Dates: start: 20080212, end: 20080212

REACTIONS (3)
  - DRUG HYPERSENSITIVITY [None]
  - ERYTHEMA [None]
  - HYPOTENSION [None]
